FAERS Safety Report 8313046-8 (Version None)
Quarter: 2012Q2

REPORT INFORMATION
  Report Type: 
  Country: None (occurrence: None)
  Receive Date: 20120424
  Receipt Date: 20120411
  Transmission Date: 20120825
  Serious: Yes (Hospitalization, Other)
  Sender: FDA-Public Use
  Company Number: MCA-N-12-027

PATIENT
  Age: 1 Day
  Sex: Male
  Weight: 2.72 kg

DRUGS (2)
  1. VALPROIC ACID [Suspect]
  2. PHENYTOIN [Suspect]

REACTIONS (16)
  - USE OF ACCESSORY RESPIRATORY MUSCLES [None]
  - ASPARTATE AMINOTRANSFERASE INCREASED [None]
  - CAESAREAN SECTION [None]
  - BRADYCARDIA NEONATAL [None]
  - CYANOSIS NEONATAL [None]
  - HAEMOGLOBIN INCREASED [None]
  - AGITATION NEONATAL [None]
  - HYPOTONIA NEONATAL [None]
  - HYPOGLYCAEMIA NEONATAL [None]
  - PREMATURE BABY [None]
  - DYSPNOEA [None]
  - DRUG WITHDRAWAL SYNDROME NEONATAL [None]
  - BLOOD CREATINE PHOSPHOKINASE INCREASED [None]
  - MATERNAL DRUGS AFFECTING FOETUS [None]
  - NEONATAL TACHYPNOEA [None]
  - PLATELET COUNT DECREASED [None]
